FAERS Safety Report 23210929 (Version 1)
Quarter: 2023Q4

REPORT INFORMATION
  Report Type: Spontaneous
  Country: RU (occurrence: RU)
  Receive Date: 20231121
  Receipt Date: 20231121
  Transmission Date: 20240110
  Serious: Yes (Hospitalization, Other)
  Sender: FDA-Public Use
  Company Number: None

PATIENT
  Age: 11 Year
  Sex: Male
  Weight: 40.8 kg

DRUGS (1)
  1. ARTICAINE HYDROCHLORIDE\EPINEPHRINE HYDROCHLORIDE [Suspect]
     Active Substance: ARTICAINE HYDROCHLORIDE\EPINEPHRINE HYDROCHLORIDE
     Indication: Local anaesthesia
     Dosage: 0.1 ML
     Route: 004
     Dates: start: 20231009, end: 20231009

REACTIONS (6)
  - Generalised tonic-clonic seizure [Recovered/Resolved]
  - Skin discolouration [Unknown]
  - Vomiting [Unknown]
  - Speech disorder [Unknown]
  - Headache [Unknown]
  - Dizziness [Unknown]

NARRATIVE: CASE EVENT DATE: 20231009
